FAERS Safety Report 7558098-8 (Version None)
Quarter: 2011Q2

REPORT INFORMATION
  Report Type: 
  Country: None (occurrence: None)
  Receive Date: 20110620
  Receipt Date: 20110610
  Transmission Date: 20111010
  Serious: Yes (Other)
  Sender: FDA-Public Use
  Company Number: JP-ASTRAZENECA-2011SE23138

PATIENT
  Age: 74 Year
  Sex: Male
  Weight: 47 kg

DRUGS (5)
  1. LEUPROLIDE ACETATE [Concomitant]
     Indication: PROSTATE CANCER
     Route: 058
     Dates: start: 20031024, end: 20050506
  2. ZOLADEX [Suspect]
     Indication: PROSTATE CANCER
     Route: 058
     Dates: start: 20100326, end: 20101228
  3. LEUPROLIDE ACETATE [Concomitant]
     Indication: PROSTATE CANCER
     Route: 058
     Dates: start: 20081017, end: 20091229
  4. GRAN [Concomitant]
     Route: 065
     Dates: start: 20110325, end: 20110331
  5. GRAN [Concomitant]
     Route: 065
     Dates: start: 20110401

REACTIONS (1)
  - PANCYTOPENIA [None]
